FAERS Safety Report 9745207 (Version 1)
Quarter: 2013Q4

REPORT INFORMATION
  Report Type: Spontaneous
  Country: US (occurrence: US)
  Receive Date: 20131211
  Receipt Date: 20131211
  Transmission Date: 20140711
  Serious: No
  Sender: FDA-Public Use
  Company Number: US-PFIZER INC-2013352082

PATIENT
  Sex: Male

DRUGS (1)
  1. LYRICA [Suspect]
     Dosage: 200 MG, UNK

REACTIONS (6)
  - Increased appetite [Unknown]
  - Mood altered [Unknown]
  - Anger [Unknown]
  - Diarrhoea [Unknown]
  - Insomnia [Unknown]
  - Abdominal discomfort [Unknown]
